FAERS Safety Report 25187040 (Version 2)
Quarter: 2025Q3

REPORT INFORMATION
  Report Type: Spontaneous
  Country: EU (occurrence: EU)
  Receive Date: 20250411
  Receipt Date: 20250730
  Transmission Date: 20251020
  Serious: Yes (Death, Life-Threatening, Hospitalization)
  Sender: ACCORD
  Company Number: EU-MLMSERVICE-20250326-PI457772-00275-1

PATIENT
  Age: 23 Year
  Sex: Male

DRUGS (2)
  1. QUETIAPINE [Interacting]
     Active Substance: QUETIAPINE
     Indication: Product used for unknown indication
  2. OXYCODONE HYDROCHLORIDE [Interacting]
     Active Substance: OXYCODONE HYDROCHLORIDE
     Indication: Product used for unknown indication

REACTIONS (17)
  - Acute kidney injury [Fatal]
  - Hyperkalaemia [Fatal]
  - Hypertransaminasaemia [Fatal]
  - Rhabdomyolysis [Fatal]
  - Hyperlactacidaemia [Fatal]
  - Toxic leukoencephalopathy [Fatal]
  - Shock [Fatal]
  - Coma [Fatal]
  - Cerebellar infarction [Fatal]
  - Brainstem compression [Fatal]
  - Brain herniation [Fatal]
  - Renal failure [Fatal]
  - Hepatic failure [Fatal]
  - Food interaction [Fatal]
  - Drug interaction [Fatal]
  - Overdose [Fatal]
  - Substance abuse [Fatal]
